FAERS Safety Report 4565671-8 (Version None)
Quarter: 2005Q1

REPORT INFORMATION
  Report Type: 
  Country: None (occurrence: None)
  Receive Date: 20050131
  Receipt Date: 20041206
  Transmission Date: 20050727
  Serious: Yes (Death, Hospitalization)
  Sender: FDA-Public Use
  Company Number: US-BRISTOL-MYERS SQUIBB COMPANY-12786430

PATIENT
  Age: 61 Year
  Sex: Male
  Weight: 89 kg

DRUGS (16)
  1. CETUXIMAB [Suspect]
     Indication: NON-SMALL CELL LUNG CANCER
     Dosage: THERAPY INITIATED 13-SEP-04. 17 COURSES TO DATE, TOTAL DOSE ADMIN. THIS COURSE=6122MG.
     Route: 042
     Dates: start: 20041123, end: 20041123
  2. CARBOPLATIN [Suspect]
     Indication: NON-SMALL CELL LUNG CANCER
     Dosage: THERAPY INITIATED 13-SEP-04. 17 COURSES TO DATE, TOTAL DOSE ADMIN. THIS COURSE=1826MG.
     Route: 042
     Dates: start: 20041102, end: 20041102
  3. PACLITAXEL [Suspect]
     Indication: NON-SMALL CELL LUNG CANCER
     Dosage: THERAPY INITIATED 13-SEP-04. 17 COURSES TO DATE, TOTAL DOSE ADMIN. THIS COURSE=665MG.
     Route: 042
     Dates: start: 20041102, end: 20041102
  4. RADIATION THERAPY [Suspect]
     Indication: NON-SMALL CELL LUNG CANCER
     Dosage: 13-SEP-04 (1ST DOSE). 17 COURSES TO DATE, TOTAL DOSE ADMIN. TO DATE 6300 GY. [EXTERNAL BEAM, 3D]
     Dates: start: 20041105, end: 20041105
  5. CALCIUM GLUCONATE [Concomitant]
  6. CARAFATE [Concomitant]
  7. CLEOCIN T [Concomitant]
  8. DELSYM [Concomitant]
  9. LAXATIVES [Concomitant]
  10. LORTAB [Concomitant]
  11. PHENERGAN [Concomitant]
  12. REGLAN [Concomitant]
  13. SYNTHROID [Concomitant]
  14. VIAGRA [Concomitant]
  15. VITAMIN B COMPLEX CAP [Concomitant]
  16. VITAMIN C [Concomitant]

REACTIONS (4)
  - COUGH [None]
  - DYSPNOEA [None]
  - HYPOXIA [None]
  - INTERSTITIAL LUNG DISEASE [None]
